FAERS Safety Report 9786718 (Version 2)
Quarter: 2014Q1

REPORT INFORMATION
  Report Type: Spontaneous
  Country: US (occurrence: US)
  Receive Date: 20131227
  Receipt Date: 20140206
  Transmission Date: 20141002
  Serious: Yes (Other)
  Sender: FDA-Public Use
  Company Number: US-FRI-1000052415

PATIENT
  Age: 27 Year
  Sex: Male

DRUGS (9)
  1. NAMENDA XR [Suspect]
     Indication: DISTURBANCE IN ATTENTION
     Dosage: 7MG
     Route: 048
     Dates: start: 20131011, end: 201310
  2. NAMENDA XR [Suspect]
     Dosage: 14MG
     Route: 048
     Dates: start: 201310, end: 201310
  3. NAMENDA XR [Suspect]
     Dosage: 21MG
     Route: 048
     Dates: start: 201310, end: 201311
  4. NAMENDA XR [Suspect]
     Indication: DISTURBANCE IN ATTENTION
     Dosage: 28MG
     Route: 048
     Dates: start: 201311, end: 201311
  5. NAMENDA XR [Suspect]
     Dosage: 21MG
     Route: 048
     Dates: start: 201311, end: 2013
  6. NAMENDA XR [Suspect]
     Indication: DISTURBANCE IN ATTENTION
     Dosage: 14MG
     Route: 048
     Dates: start: 2013, end: 2014
  7. NAMENDA XR [Suspect]
     Dosage: 14MG AS NEEDED
     Route: 048
     Dates: start: 2014
  8. ALTERIL [Concomitant]
     Indication: INSOMNIA
     Dosage: AS NEEDED
  9. MARIJUANA [Concomitant]
     Dosage: DAILY

REACTIONS (7)
  - Psychotic disorder [Recovered/Resolved]
  - Dissociation [Recovered/Resolved]
  - Insomnia [Recovered/Resolved]
  - Obsessive-compulsive disorder [Recovered/Resolved]
  - Decreased appetite [Recovered/Resolved]
  - Off label use [Not Recovered/Not Resolved]
  - Intentional drug misuse [Not Recovered/Not Resolved]
